FAERS Safety Report 6238181-X (Version None)
Quarter: 2009Q2

REPORT INFORMATION
  Report Type: 
  Country: None (occurrence: None)
  Receive Date: 20090618
  Receipt Date: 20090611
  Transmission Date: 20091009
  Serious: Yes (Hospitalization)
  Sender: FDA-Public Use
  Company Number: CHPA2009US13379

PATIENT
  Age: 81 Year
  Sex: Female

DRUGS (3)
  1. MAALOX ANTACID/ANTIGAS RS LIQ COOL MINT (NCH) (MAGNESIUM HYDROXIDE, AL [Suspect]
     Indication: ABDOMINAL DISCOMFORT
     Dosage: 4 TSP, QHS, ORAL
     Route: 048
     Dates: start: 20090507, end: 20090610
  2. MAALOX ANTACID/ANTIGAS RS LIQ COOL MINT (NCH) (MAGNESIUM HYDROXIDE, AL [Suspect]
     Indication: DYSPEPSIA
     Dosage: 4 TSP, QHS, ORAL
     Route: 048
     Dates: start: 20090507, end: 20090610
  3. MAALOX ANTACID/ANTIGAS RS LIQ COOL MINT (NCH) (MAGNESIUM HYDROXIDE, AL [Suspect]
     Indication: HYPERCHLORHYDRIA
     Dosage: 4 TSP, QHS, ORAL
     Route: 048
     Dates: start: 20090507, end: 20090610

REACTIONS (5)
  - CHEST PAIN [None]
  - DECREASED APPETITE [None]
  - DIARRHOEA [None]
  - HYPOPHAGIA [None]
  - INTENTIONAL DRUG MISUSE [None]
